FAERS Safety Report 20110644 (Version 1)
Quarter: 2021Q4

REPORT INFORMATION
  Report Type: Spontaneous
  Country: US (occurrence: None)
  Receive Date: 20211124
  Receipt Date: 20211124
  Transmission Date: 20220303
  Serious: Yes (Death, Life-Threatening)
  Sender: FDA-Public Use
  Company Number: None

PATIENT
  Age: 50 Year
  Sex: Male
  Weight: 105.1 kg

DRUGS (10)
  1. BARICITINIB [Suspect]
     Active Substance: BARICITINIB
     Indication: COVID-19
     Dosage: FREQUENCY : DAILY;?
     Route: 048
     Dates: start: 20211026, end: 20211028
  2. ACETAMINOPHEN [Concomitant]
     Active Substance: ACETAMINOPHEN
     Dates: start: 20211026, end: 20211026
  3. ALPRAZOLAM [Concomitant]
     Active Substance: ALPRAZOLAM
     Dates: start: 20211027, end: 20211027
  4. aspirin [Concomitant]
     Dates: start: 20211028, end: 20211028
  5. DEXAMETHASONE [Concomitant]
     Active Substance: DEXAMETHASONE
     Dates: start: 20211025, end: 20211028
  6. ENOXAPARIN [Concomitant]
     Active Substance: ENOXAPARIN
     Dates: start: 20211025, end: 20211029
  7. FAMOTIDINE [Concomitant]
     Active Substance: FAMOTIDINE
     Dates: start: 20211025, end: 20211101
  8. DUONEB [Concomitant]
     Active Substance: ALBUTEROL SULFATE\IPRATROPIUM BROMIDE
     Dates: start: 20211025, end: 20211030
  9. MELATONIN [Concomitant]
     Active Substance: MELATONIN
     Dates: start: 20211026, end: 20211027
  10. REMDESIVIR [Concomitant]
     Active Substance: REMDESIVIR
     Dates: start: 20211025, end: 20211031

REACTIONS (6)
  - Confusional state [None]
  - Dysarthria [None]
  - Monoplegia [None]
  - Cerebrovascular accident [None]
  - Cerebral infarction [None]
  - Infusion related reaction [None]

NARRATIVE: CASE EVENT DATE: 20211028
